FAERS Safety Report 5731067-6 (Version None)
Quarter: 2008Q2

REPORT INFORMATION
  Report Type: 
  Country: None (occurrence: None)
  Receive Date: 20080507
  Receipt Date: 20080501
  Transmission Date: 20081010
  Serious: Yes (Death)
  Sender: FDA-Public Use
  Company Number: AU-MERCK-0805AUS00008

PATIENT
  Age: 55 Year
  Sex: Female

DRUGS (1)
  1. FOSAMAX [Suspect]
     Indication: OSTEOPOROSIS
     Route: 048
     Dates: start: 20060101, end: 20080101

REACTIONS (4)
  - ANOREXIA [None]
  - FLUID RETENTION [None]
  - MALNUTRITION [None]
  - ORGAN FAILURE [None]
